FAERS Safety Report 8922009 (Version 1)
Quarter: 2012Q4

REPORT INFORMATION
  Report Type: Spontaneous
  Country: US (occurrence: None)
  Receive Date: 20121120
  Receipt Date: 20121120
  Transmission Date: 20130627
  Serious: Yes (Other)
  Sender: FDA-Public Use
  Company Number: None

PATIENT
  Age: 7 Year
  Sex: Male
  Weight: 22.68 kg

DRUGS (1)
  1. TAMIFLU [Suspect]
     Indication: INFLUENZA A VIRUS INFECTION
     Dosage: 2 TEASPOONSFUL TWICE DAILY PO
     Route: 048
     Dates: start: 20121115, end: 20121115

REACTIONS (4)
  - Screaming [None]
  - Middle insomnia [None]
  - Hallucination [None]
  - Sleep terror [None]
